FAERS Safety Report 9780591 (Version 3)
Quarter: 2014Q1

REPORT INFORMATION
  Report Type: Other
  Country: IT (occurrence: IT)
  Receive Date: 20131224
  Receipt Date: 20140210
  Transmission Date: 20141002
  Serious: Yes (Hospitalization)
  Sender: FDA-Public Use
  Company Number: IT-TAKEDA-2013TEU003503

PATIENT
  Age: 18 Year
  Sex: Female

DRUGS (8)
  1. LANSOPRAZOLE [Suspect]
     Indication: STEROID THERAPY
     Dosage: 30 MG, QD
     Route: 048
     Dates: start: 20131015, end: 20131130
  2. ISOPTIN /00014302/ [Suspect]
     Indication: MIGRAINE
     Dosage: 160 MG, QD
     Route: 048
     Dates: start: 20131122, end: 20131130
  3. DEPAMAG [Suspect]
     Indication: MIGRAINE
     Dosage: 500 MG, QD
     Route: 048
     Dates: start: 20131015, end: 20131130
  4. URBASON SOLUBILE [Concomitant]
     Dosage: UNK
     Dates: start: 20131122, end: 20131128
  5. DELTACORTENE [Concomitant]
  6. LIMPIDEX [Concomitant]
  7. MAXALT                             /01406501/ [Concomitant]
  8. BRIOPLUS [Concomitant]
     Dosage: 2 DF, QD
     Route: 048

REACTIONS (3)
  - Arthritis [Recovered/Resolved]
  - Urticaria [Recovered/Resolved]
  - Off label use [Unknown]
